FAERS Safety Report 19706237 (Version 2)
Quarter: 2021Q3

REPORT INFORMATION
  Report Type: Spontaneous
  Country: US (occurrence: US)
  Receive Date: 20210817
  Receipt Date: 20210924
  Transmission Date: 20211014
  Serious: No
  Sender: FDA-Public Use
  Company Number: US-ORGANON-O2108USA000349

PATIENT
  Age: 26 Year
  Sex: Female

DRUGS (1)
  1. NEXPLANON [Suspect]
     Active Substance: ETONOGESTREL
     Indication: CONTRACEPTION
     Dosage: ONE EVERY THREE YEARS AT LEFT UPPER ARM
     Route: 059
     Dates: start: 20210427, end: 20210527

REACTIONS (3)
  - Device placement issue [Recovered/Resolved]
  - Complication associated with device [Recovered/Resolved]
  - Implant site pain [Unknown]

NARRATIVE: CASE EVENT DATE: 20210427
